FAERS Safety Report 5670234-7 (Version None)
Quarter: 2008Q1

REPORT INFORMATION
  Report Type: 
  Country: None (occurrence: None)
  Receive Date: 20080318
  Receipt Date: 20080306
  Transmission Date: 20080703
  Serious: Yes (Hospitalization)
  Sender: FDA-Public Use
  Company Number: GB-RANBAXY-2008RR-13595

PATIENT

DRUGS (11)
  1. ACETAMINOPHEN [Suspect]
     Indication: PAIN
     Route: 065
  2. FLUCLOXACILLIN [Suspect]
     Indication: INTERVERTEBRAL DISCITIS
     Dosage: 8 G, UNK
     Route: 042
  3. CALCIUM CHANNEL BLOCKER [Concomitant]
     Route: 065
  4. CEFTRIAXONE [Concomitant]
     Indication: SEPSIS
     Route: 065
  5. GENTAMICIN [Concomitant]
     Route: 065
  6. GLICLAZIDE [Concomitant]
     Route: 065
  7. METRONIDAZOLE HCL [Concomitant]
     Indication: SEPSIS
     Route: 065
  8. NITRATES [Concomitant]
  9. OPIATES [Concomitant]
     Indication: PAIN
     Route: 065
  10. TRAMADOL HCL [Concomitant]
     Route: 065
  11. PYROGLUTAMIC ACID [Concomitant]

REACTIONS (15)
  - ABDOMINAL TENDERNESS [None]
  - ACUTE RESPIRATORY DISTRESS SYNDROME [None]
  - BLOOD CHLORIDE INCREASED [None]
  - DEPRESSED LEVEL OF CONSCIOUSNESS [None]
  - ENCEPHALOPATHY [None]
  - METABOLIC ACIDOSIS [None]
  - MULTI-ORGAN FAILURE [None]
  - PYROGLUTAMATE INCREASED [None]
  - RENAL IMPAIRMENT [None]
  - RENAL INJURY [None]
  - RESPIRATORY DISTRESS [None]
  - RESPIRATORY FAILURE [None]
  - SEPTIC SHOCK [None]
  - SOMNOLENCE [None]
  - WHEEZING [None]
